FAERS Safety Report 24843083 (Version 1)
Quarter: 2025Q1

REPORT INFORMATION
  Report Type: Report from Study
  Country: US (occurrence: US)
  Receive Date: 20250115
  Receipt Date: 20250115
  Transmission Date: 20250409
  Serious: No
  Sender: HRA PHARMA
  Company Number: US-ORG100014127-2024000298

PATIENT
  Age: 75 Year
  Sex: Female

DRUGS (3)
  1. LYSODREN [Suspect]
     Active Substance: MITOTANE
     Indication: Adrenal gland cancer
     Dosage: ONE TABLET TWICE A DAY FOR 7 DAYS
     Route: 048
     Dates: start: 20240927
  2. LYSODREN [Suspect]
     Active Substance: MITOTANE
     Indication: Adrenal gland cancer
     Dosage: TWO TABLETS TWICE DAILY FOR 7 DAYS
     Route: 048
  3. LYSODREN [Suspect]
     Active Substance: MITOTANE
     Indication: Adrenal gland cancer
     Dosage: ONE TABLET TWICE DAILY
     Route: 048
     Dates: end: 202411

REACTIONS (3)
  - Musculoskeletal chest pain [Recovered/Resolved]
  - Groin pain [Recovered/Resolved]
  - Fatigue [Recovered/Resolved]

NARRATIVE: CASE EVENT DATE: 20241008
